FAERS Safety Report 5728771-2 (Version None)
Quarter: 2008Q2

REPORT INFORMATION
  Report Type: 
  Country: None (occurrence: None)
  Receive Date: 20080506
  Receipt Date: 20080502
  Transmission Date: 20081010
  Serious: Yes (Other)
  Sender: FDA-Public Use
  Company Number: B0518905A

PATIENT
  Sex: Male

DRUGS (1)
  1. KIVEXA [Suspect]
     Indication: HIV INFECTION
     Route: 048

REACTIONS (2)
  - ANGINA PECTORIS [None]
  - CARDIOVASCULAR DISORDER [None]
